FAERS Safety Report 4474152-1 (Version None)
Quarter: 2004Q4

REPORT INFORMATION
  Report Type: 
  Country: None (occurrence: None)
  Receive Date: 20041008
  Receipt Date: 20040923
  Transmission Date: 20050328
  Serious: Yes (Hospitalization)
  Sender: FDA-Public Use
  Company Number: 2004-UK-00951UK

PATIENT
  Age: 38 Year
  Sex: Male

DRUGS (5)
  1. VIRAMUNE [Suspect]
     Indication: ACQUIRED IMMUNODEFICIENCY SYNDROME
     Dosage: 200 MG TWICE DAILY (200 MG, TWICE DAILY)
     Route: 048
     Dates: start: 19970707
  2. CLARITHROMYCIN [Suspect]
     Indication: LOWER RESPIRATORY TRACT INFECTION
     Dosage: 1000 MG (500 MG, TWICE DAILY)
     Route: 048
     Dates: start: 19970819, end: 19970830
  3. ZIDOVUDINE [Concomitant]
  4. DIDANOSINE [Concomitant]
  5. SIMVASTATIN [Concomitant]

REACTIONS (12)
  - ABNORMAL BEHAVIOUR [None]
  - ANXIETY [None]
  - BLOOD PRESSURE DECREASED [None]
  - DISTURBANCE IN ATTENTION [None]
  - DRUG INTERACTION [None]
  - DRUG LEVEL INCREASED [None]
  - HOMICIDAL IDEATION [None]
  - MENTAL DISORDER [None]
  - NEUROSIS [None]
  - PSYCHOMOTOR HYPERACTIVITY [None]
  - SPEECH DISORDER [None]
  - SUICIDAL IDEATION [None]
